FAERS Safety Report 21070384 (Version 2)
Quarter: 2022Q3

REPORT INFORMATION
  Report Type: Spontaneous
  Country: US (occurrence: US)
  Receive Date: 20220712
  Receipt Date: 20220722
  Transmission Date: 20221026
  Serious: No
  Sender: FDA-Public Use
  Company Number: US-ELI_LILLY_AND_COMPANY-US202206011916

PATIENT
  Sex: Female
  Weight: 70.023 kg

DRUGS (4)
  1. TADALAFIL [Suspect]
     Active Substance: TADALAFIL
     Indication: Product used for unknown indication
     Dosage: UNK UNK, UNKNOWN
     Route: 065
  2. AMBRISENTAN [Suspect]
     Active Substance: AMBRISENTAN
     Indication: Product used for unknown indication
     Dosage: UNK UNK, UNKNOWN
     Route: 065
  3. REMODULIN [Suspect]
     Active Substance: TREPROSTINIL
     Indication: Pulmonary arterial hypertension
     Dosage: UNK UNK, OTHER(6 NG/KG/MIN, CONTINUOUS)
     Route: 042
     Dates: start: 20220519
  4. REMODULIN [Suspect]
     Active Substance: TREPROSTINIL
     Dosage: UNK UNK, OTHER(7 NG/KG/MIN, CONTINUOUS)
     Route: 042
     Dates: start: 20220519

REACTIONS (5)
  - Pruritus [Unknown]
  - Cough [Unknown]
  - Sinusitis [Unknown]
  - Swelling face [Unknown]
  - Rhinorrhoea [Unknown]
